FAERS Safety Report 22287104 (Version 1)
Quarter: 2023Q2

REPORT INFORMATION
  Report Type: Spontaneous
  Country: CA (occurrence: CA)
  Receive Date: 20230505
  Receipt Date: 20230505
  Transmission Date: 20230721
  Serious: Yes (Hospitalization)
  Sender: FDA-Public Use
  Company Number: CA-AMGEN-CANSP2023074248

PATIENT
  Age: 72 Year
  Sex: Male

DRUGS (1)
  1. MVASI [Suspect]
     Active Substance: BEVACIZUMAB-AWWB
     Indication: Lung cancer metastatic
     Dosage: 400 MILLIGRAM
     Route: 042

REACTIONS (3)
  - Hypotension [Unknown]
  - Diarrhoea [Unknown]
  - Hypokalaemia [Unknown]
